FAERS Safety Report 7249137-2 (Version None)
Quarter: 2011Q1

REPORT INFORMATION
  Report Type: 
  Country: None (occurrence: None)
  Receive Date: 20110128
  Receipt Date: 20101130
  Transmission Date: 20110831
  Serious: Yes (Hospitalization, Other)
  Sender: FDA-Public Use
  Company Number: US-BAYER-2010-001134

PATIENT
  Sex: Male
  Weight: 106.58 kg

DRUGS (11)
  1. NADOLOL [Concomitant]
  2. OMEPRAZOLE [Concomitant]
  3. HUMALOG [Concomitant]
  4. FOLIC ACID [Concomitant]
  5. LASIX [Concomitant]
  6. LANTUS [Concomitant]
  7. SPIRONOLACTONE [Concomitant]
  8. MAGNESIUM OXIDE [Concomitant]
  9. NEXAVAR [Suspect]
     Indication: HEPATIC NEOPLASM MALIGNANT
     Dosage: 200 MG, BID
     Route: 048
     Dates: start: 20101020, end: 20101109
  10. VITAMIN D [Concomitant]
  11. WARFARIN SODIUM [Concomitant]

REACTIONS (3)
  - HEPATIC FAILURE [None]
  - URINARY TRACT INFECTION [None]
  - AMMONIA INCREASED [None]
